FAERS Safety Report 10239895 (Version 4)
Quarter: 2014Q4

REPORT INFORMATION
  Report Type: Spontaneous
  Country: US (occurrence: US)
  Receive Date: 20140616
  Receipt Date: 20141115
  Transmission Date: 20150528
  Serious: No
  Sender: FDA-Public Use
  Company Number: US-009507513-1406USA007988

PATIENT
  Age: 20 Year
  Sex: Female
  Weight: 51.7 kg

DRUGS (2)
  1. NEXPLANON [Suspect]
     Active Substance: ETONOGESTREL
     Indication: CONTRACEPTION
     Dosage: UNK
     Route: 059
     Dates: start: 20140604
  2. VITAMIN D [Concomitant]
     Active Substance: CHOLECALCIFEROL

REACTIONS (7)
  - Joint range of motion decreased [Unknown]
  - Pain of skin [Unknown]
  - Pain in extremity [Recovered/Resolved]
  - Peripheral swelling [Recovered/Resolved]
  - Limb discomfort [Unknown]
  - Medical device complication [Recovered/Resolved]
  - Scar [Unknown]

NARRATIVE: CASE EVENT DATE: 20140604
